FAERS Safety Report 6252842-8 (Version None)
Quarter: 2009Q3

REPORT INFORMATION
  Report Type: 
  Country: None (occurrence: None)
  Receive Date: 20090701
  Receipt Date: 20090623
  Transmission Date: 20100115
  Serious: Yes (Other)
  Sender: FDA-Public Use
  Company Number: US-KINGPHARMUSA00001-K200900742

PATIENT
  Age: 87 Year
  Sex: Female

DRUGS (7)
  1. ALTACE [Suspect]
     Indication: HYPERTENSION
     Dosage: 5 MG, QD
     Route: 048
     Dates: start: 20090524
  2. ALTACE [Suspect]
     Dosage: UNK
     Route: 048
  3. LASIX [Suspect]
     Indication: HYPERTENSION
     Dosage: UNK
     Route: 048
     Dates: start: 20090524
  4. ISOPTIN [Suspect]
     Dosage: 120 MG, QD
     Route: 048
     Dates: start: 20090524
  5. LANOXIN [Suspect]
     Dosage: 0.125 MG, QD
     Route: 048
     Dates: start: 20090524
  6. COUMADIN [Concomitant]
     Dosage: 5 MG, UNK
     Route: 048
  7. LANSOX [Concomitant]
     Route: 048

REACTIONS (3)
  - DEHYDRATION [None]
  - HYPOTENSION [None]
  - SYNCOPE [None]
